FAERS Safety Report 21876906 (Version 2)
Quarter: 2023Q2

REPORT INFORMATION
  Report Type: Report from Study
  Country: US (occurrence: US)
  Receive Date: 20230118
  Receipt Date: 20230615
  Transmission Date: 20230721
  Serious: Yes (Hospitalization)
  Sender: FDA-Public Use
  Company Number: US-ETON PHARMACEUTICALS, INC-2023ETO000015

PATIENT

DRUGS (1)
  1. ALKINDI SPRINKLE [Suspect]
     Active Substance: HYDROCORTISONE
     Indication: Adrenal insufficiency
     Dosage: FIVE 0.5 MG CAPSULES EVERY MORNING AND THREE 0.5 MG CAPSULES EVERY EVENING
     Route: 048
     Dates: start: 20220824

REACTIONS (2)
  - Adrenocortical insufficiency acute [Recovered/Resolved]
  - Hypoglycaemia [Recovered/Resolved]
